FAERS Safety Report 7616994-7 (Version None)
Quarter: 2011Q3

REPORT INFORMATION
  Report Type: 
  Country: None (occurrence: None)
  Receive Date: 20110718
  Receipt Date: 20110708
  Transmission Date: 20111222
  Serious: No
  Sender: FDA-Public Use
  Company Number: US-BIOGENIDEC-2011BI025643

PATIENT
  Age: 48 Year
  Sex: Female

DRUGS (1)
  1. AVONEX [Suspect]
     Indication: MULTIPLE SCLEROSIS
     Route: 030
     Dates: start: 20051001, end: 20110101

REACTIONS (5)
  - SCOLIOSIS [None]
  - NERVE COMPRESSION [None]
  - PAIN [None]
  - FALL [None]
  - PAIN IN EXTREMITY [None]
